FAERS Safety Report 21533522 (Version 4)
Quarter: 2023Q1

REPORT INFORMATION
  Report Type: Report from Study
  Country: US (occurrence: US)
  Receive Date: 20221101
  Receipt Date: 20230222
  Transmission Date: 20230417
  Serious: No
  Sender: FDA-Public Use
  Company Number: US-NOVARTISTESTPH-NVSC2022US245354

PATIENT
  Sex: Female

DRUGS (1)
  1. COSENTYX [Suspect]
     Active Substance: SECUKINUMAB
     Indication: Psoriatic arthropathy
     Dosage: 150 MG, ONCE A WEEK FOR 5 WEEKS
     Route: 058

REACTIONS (4)
  - Arthralgia [Unknown]
  - Stress [Unknown]
  - Pain [Unknown]
  - Diarrhoea [Not Recovered/Not Resolved]
